FAERS Safety Report 6537769-6 (Version None)
Quarter: 2009Q4

REPORT INFORMATION
  Report Type: 
  Country: None (occurrence: None)
  Receive Date: 20091229
  Receipt Date: 20091103
  Transmission Date: 20100525
  Serious: No
  Sender: FDA-Public Use
  Company Number: 1000009877

PATIENT
  Age: 68 Year
  Sex: Female

DRUGS (1)
  1. BYSTOLIC [Suspect]
     Indication: HYPERTENSION
     Dosage: (1 IN 1 D)
     Dates: start: 20090701, end: 20091001

REACTIONS (2)
  - RASH [None]
  - TOOTH ABSCESS [None]
